FAERS Safety Report 4563741-1 (Version None)
Quarter: 2005Q1

REPORT INFORMATION
  Report Type: 
  Country: None (occurrence: None)
  Receive Date: 20050112
  Receipt Date: 20050112
  Transmission Date: 20050727
  Serious: Yes (Disabling)
  Sender: FDA-Public Use
  Company Number: None

PATIENT
  Age: 19 Year
  Sex: Male
  Weight: 129.2752 kg

DRUGS (6)
  1. DEPAKOTE ER [Suspect]
     Indication: CONVULSION
     Dosage: 8:00 AM  7:00PM
  2. DEPAKOTE ER [Suspect]
     Indication: EPILEPSY
     Dosage: 8:00 AM  7:00PM
  3. DILANTIN [Suspect]
     Indication: CONVULSION
     Dosage: THREE PO BID
     Route: 048
  4. DILANTIN [Suspect]
     Indication: EPILEPSY
     Dosage: THREE PO BID
     Route: 048
  5. KEPPRA [Suspect]
     Dosage: 500 MG THREE PO BID
     Route: 048
  6. DIASTAT [Suspect]
     Dosage: 15 MG

REACTIONS (2)
  - ANTICONVULSANT DRUG LEVEL DECREASED [None]
  - CONVULSION [None]
